FAERS Safety Report 20091584 (Version 1)
Quarter: 2021Q4

REPORT INFORMATION
  Report Type: Spontaneous
  Country: IT (occurrence: IT)
  Receive Date: 20211119
  Receipt Date: 20211119
  Transmission Date: 20220303
  Serious: Yes (Other)
  Sender: FDA-Public Use
  Company Number: IT-ARBOR PHARMACEUTICALS, LLC-IT-2021ARB001480

PATIENT

DRUGS (4)
  1. TRIPTODUR [Suspect]
     Active Substance: TRIPTORELIN
     Indication: Prostate cancer
     Dosage: NOT REPORTED
     Route: 065
  2. TRIPTODUR [Suspect]
     Active Substance: TRIPTORELIN
  3. TRIPTODUR [Suspect]
     Active Substance: TRIPTORELIN
  4. BICALUTAMIDE [Suspect]
     Active Substance: BICALUTAMIDE
     Indication: Tumour flare
     Dosage: 50 MG, QD
     Route: 065

REACTIONS (6)
  - Metastases to lymph nodes [Unknown]
  - Metastases to bone [Unknown]
  - Metastasis [Unknown]
  - Prostatic specific antigen increased [Unknown]
  - Gastrointestinal toxicity [Unknown]
  - Male reproductive tract disorder [Unknown]
